FAERS Safety Report 8814340 (Version 1)
Quarter: 2012Q4

REPORT INFORMATION
  Report Type: Spontaneous
  Country: JP (occurrence: None)
  Receive Date: 20120925
  Receipt Date: 20120925
  Transmission Date: 20130627
  Serious: Yes (Other)
  Sender: FDA-Public Use
  Company Number: 2012P1058396

PATIENT
  Age: 4 Year
  Sex: Male

DRUGS (3)
  1. FAMOTIDINE [Suspect]
     Indication: PROPHYLAXIS
     Route: 048
     Dates: start: 2010, end: 20120726
  2. DANTRIUM [Suspect]
     Route: 048
     Dates: start: 2010, end: 20120726
  3. CORTICOSTEROIDS [Concomitant]

REACTIONS (3)
  - Sinus tachycardia [None]
  - Off label use [None]
  - Blood catecholamines increased [None]
